FAERS Safety Report 13327330 (Version 1)
Quarter: 2017Q1

REPORT INFORMATION
  Report Type: Spontaneous
  Country: US (occurrence: US)
  Receive Date: 20170313
  Receipt Date: 20170313
  Transmission Date: 20170428
  Serious: No
  Sender: FDA-Public Use
  Company Number: US-JNJFOC-20161213244

PATIENT
  Age: 49 Year
  Sex: Male
  Weight: 88.91 kg

DRUGS (3)
  1. PROPECIA [Concomitant]
     Active Substance: FINASTERIDE
     Indication: ALOPECIA
     Dosage: 7YEARS
     Route: 065
  2. MENS ROGAINE EXTRA STRENGTH [Suspect]
     Active Substance: MINOXIDIL
     Indication: ALOPECIA
     Dosage: ONE DROPPER
     Route: 061
     Dates: end: 20161212
  3. MENS ROGAINE EXTRA STRENGTH [Suspect]
     Active Substance: MINOXIDIL
     Indication: ALOPECIA
     Dosage: ONE DROPPER
     Route: 061

REACTIONS (4)
  - Alopecia [Recovering/Resolving]
  - Feeling abnormal [Recovering/Resolving]
  - Urticaria [Recovering/Resolving]
  - Pruritus [Recovering/Resolving]
